FAERS Safety Report 19214969 (Version 2)
Quarter: 2021Q2

REPORT INFORMATION
  Report Type: Spontaneous
  Country: US (occurrence: US)
  Receive Date: 20210505
  Receipt Date: 20210602
  Transmission Date: 20210717
  Serious: No
  Sender: FDA-Public Use
  Company Number: US-ASTRAZENECA-2021A390790

PATIENT
  Sex: Male
  Weight: 145.2 kg

DRUGS (2)
  1. BYDUREON BCISE [Suspect]
     Active Substance: EXENATIDE
     Route: 058
     Dates: start: 20210430
  2. BYDUREON [Suspect]
     Active Substance: EXENATIDE
     Route: 058

REACTIONS (6)
  - Needle issue [Unknown]
  - Injection site mass [Unknown]
  - Intentional device misuse [Unknown]
  - Device issue [Unknown]
  - Drug dose omission by device [Unknown]
  - Incorrect dose administered by device [Unknown]
